FAERS Safety Report 5457050-6 (Version None)
Quarter: 2007Q3

REPORT INFORMATION
  Report Type: 
  Country: None (occurrence: None)
  Receive Date: 20070918
  Receipt Date: 20061218
  Transmission Date: 20080115
  Serious: No
  Sender: FDA-Public Use
  Company Number: US-ASTRAZENECA-2006UW28188

PATIENT
  Age: 41 Year
  Sex: Female
  Weight: 63.6 kg

DRUGS (2)
  1. SEROQUEL [Suspect]
     Route: 048
  2. SINEMET [Concomitant]

REACTIONS (1)
  - DRUG SCREEN FALSE POSITIVE [None]
